FAERS Safety Report 9778605 (Version 1)
Quarter: 2013Q4

REPORT INFORMATION
  Report Type: Spontaneous
  Country: NL (occurrence: NL)
  Receive Date: 20131223
  Receipt Date: 20131223
  Transmission Date: 20140711
  Serious: Yes (Death)
  Sender: FDA-Public Use
  Company Number: NL-SA-2013SA130218

PATIENT
  Age: 56 Year
  Sex: Female
  Weight: 175 kg

DRUGS (13)
  1. CEFOTAXIME SODIUM [Suspect]
     Indication: ERYSIPELAS
     Route: 030
     Dates: start: 20131128, end: 20131130
  2. PARACETAMOL [Concomitant]
     Dosage: STRENGTH: 500 MG
     Route: 048
  3. ALLOPURINOL [Concomitant]
     Dosage: STRENGTH: 100 MG
     Route: 048
  4. MICONAZOLE [Concomitant]
     Dosage: STRENGTH: 20 MG/G
     Route: 003
  5. FUROSEMIDE [Concomitant]
     Dosage: STRENGTH: 40 MG
     Route: 048
  6. FUROSEMIDE [Concomitant]
     Route: 042
  7. CALCICHEW D3 [Concomitant]
     Dosage: STRENGTH: 500MG/400IE
     Route: 048
  8. METOCLOPRAMIDE [Concomitant]
     Dosage: STRENGTH: 10MG
     Route: 048
  9. ESOMEPRAZOL [Concomitant]
     Dosage: STRENGTH: 40 MG
     Route: 048
  10. METOPROLOL [Concomitant]
     Dosage: STRENGTH: 200 MG
     Route: 048
     Dates: start: 20131123
  11. NOVORAPID [Concomitant]
     Route: 060
  12. OXYNORM [Concomitant]
     Dosage: STRENGTH: 5MG
     Route: 048
  13. NADROPARIN [Concomitant]
     Route: 058

REACTIONS (1)
  - Toxic epidermal necrolysis [Fatal]
